FAERS Safety Report 9893071 (Version 2)
Quarter: 2014Q1

REPORT INFORMATION
  Report Type: Report from Study
  Country: NL (occurrence: NL)
  Receive Date: 20140213
  Receipt Date: 20140213
  Transmission Date: 20141002
  Serious: Yes (Hospitalization, Other)
  Sender: FDA-Public Use
  Company Number: NL-ROCHE-1215935

PATIENT
  Age: 41 Year
  Sex: Female
  Weight: 65.5 kg

DRUGS (1)
  1. VEMURAFENIB [Suspect]
     Indication: MALIGNANT MELANOMA
     Dosage: DOSE OF VEMURAFENIB : 960?DATE OF MOST RECENT DOSE OF VEMURAFENIB PRIOR TO AE ONSET 23 APR 2013
     Route: 048
     Dates: start: 20130402

REACTIONS (5)
  - Hyperventilation [Recovered/Resolved]
  - Dyspnoea [Recovered/Resolved]
  - Dermatitis [Unknown]
  - Aspartate aminotransferase increased [Not Recovered/Not Resolved]
  - Blood alkaline phosphatase increased [Not Recovered/Not Resolved]
